FAERS Safety Report 5732493-1 (Version None)
Quarter: 2008Q2

REPORT INFORMATION
  Report Type: 
  Country: None (occurrence: None)
  Receive Date: 20080508
  Receipt Date: 20080430
  Transmission Date: 20081010
  Serious: Yes (Death)
  Sender: FDA-Public Use
  Company Number: JP-MERCK-0805USA00296

PATIENT
  Age: 70 Year
  Sex: Male

DRUGS (1)
  1. PEPCID [Suspect]
     Indication: GASTRIC ULCER PERFORATION
     Route: 051

REACTIONS (1)
  - GASTRIC MUCOSAL LESION [None]
